FAERS Safety Report 7323544-1 (Version None)
Quarter: 2011Q1

REPORT INFORMATION
  Report Type: 
  Country: None (occurrence: None)
  Receive Date: 20110301
  Receipt Date: 20110215
  Transmission Date: 20110831
  Serious: Yes (Other)
  Sender: FDA-Public Use
  Company Number: CH-ROCHE-760136

PATIENT
  Age: 55 Year
  Sex: Female
  Weight: 116 kg

DRUGS (1)
  1. ACTEMRA [Suspect]
     Route: 041
     Dates: start: 20100601, end: 20101123

REACTIONS (3)
  - PULMONARY EMBOLISM [None]
  - TACHYCARDIA [None]
  - DYSPNOEA [None]
